FAERS Safety Report 7440712-9 (Version None)
Quarter: 2011Q2

REPORT INFORMATION
  Report Type: 
  Country: None (occurrence: None)
  Receive Date: 20110427
  Receipt Date: 20110413
  Transmission Date: 20111010
  Serious: Yes (Disabling, Other)
  Sender: FDA-Public Use
  Company Number: CA-JNJFOC-20110406510

PATIENT
  Sex: Male
  Weight: 78 kg

DRUGS (3)
  1. QUESTRAN [Concomitant]
     Indication: DIARRHOEA
  2. QUESTRAN [Concomitant]
     Indication: TOTAL BILE ACIDS
  3. REMICADE [Suspect]
     Indication: CROHN'S DISEASE
     Dosage: 0-2-6 EVERY 8 WEEKS
     Route: 042

REACTIONS (5)
  - POLYARTHRITIS [None]
  - LUPUS-LIKE SYNDROME [None]
  - ANTINUCLEAR ANTIBODY POSITIVE [None]
  - ENTHESOPATHY [None]
  - DNA ANTIBODY POSITIVE [None]
